FAERS Safety Report 8100785-7 (Version None)
Quarter: 2012Q1

REPORT INFORMATION
  Report Type: 
  Country: None (occurrence: None)
  Receive Date: 20120129
  Receipt Date: 20111013
  Transmission Date: 20120608
  Serious: Yes (Hospitalization)
  Sender: FDA-Public Use
  Company Number: US-ABBOTT-11P-163-0864349-00

PATIENT
  Age: 51 Year
  Sex: Female

DRUGS (20)
  1. BENTYL [Concomitant]
     Indication: CROHN'S DISEASE
  2. LORAZEPAM [Concomitant]
     Indication: ANXIETY
  3. INVEGA [Concomitant]
     Indication: BIPOLAR DISORDER
     Dosage: DAILY
  4. ABILIFY [Concomitant]
     Indication: BIPOLAR DISORDER
  5. CHOLESTYRAMINE [Concomitant]
     Indication: CROHN'S DISEASE
  6. SUBOXONE [Concomitant]
     Indication: PAIN
     Dosage: 4-8 MG, 1-2 TIMES DAILY
  7. ESTRADIOL [Concomitant]
     Indication: HORMONE REPLACEMENT THERAPY
  8. PHENERGAN [Concomitant]
     Indication: NAUSEA
     Dosage: EVERY 6 HOURS AS NEEDED
  9. LANSOPRAZOLE [Concomitant]
     Indication: CROHN'S DISEASE
  10. GABAPENTIN [Concomitant]
     Indication: BIPOLAR DISORDER
  11. PREDNISONE TAB [Concomitant]
     Indication: PRODUCT USED FOR UNKNOWN INDICATION
     Dosage: 3 IN 1 DAY, TAPERING OFF
  12. TRIAMCINOLONE ACETONIDE [Concomitant]
     Indication: DRY SKIN
     Route: 061
  13. HUMIRA [Suspect]
     Indication: CROHN'S DISEASE
     Dates: start: 20110901
  14. GABAPENTIN [Concomitant]
     Indication: MIGRAINE
  15. HYDROCHLOROTHIAZIDE [Concomitant]
     Indication: HYPERTENSION
  16. EFFEXOR XR [Concomitant]
     Indication: BIPOLAR DISORDER
     Dosage: DAILY
  17. METHOTREXATE [Concomitant]
     Indication: PRODUCT USED FOR UNKNOWN INDICATION
     Dates: start: 20110501
  18. FOLIC ACID [Concomitant]
     Indication: VITAMIN SUPPLEMENTATION
  19. BUSPIRON [Concomitant]
     Indication: ANXIETY
  20. ONDANSETRON HCL [Concomitant]
     Indication: NAUSEA
     Dosage: EVERY 6 HOURS AS NEEDED

REACTIONS (7)
  - GASTROENTERITIS VIRAL [None]
  - LISTERIOSIS [None]
  - CLOSTRIDIUM DIFFICILE COLITIS [None]
  - ESCHERICHIA INFECTION [None]
  - VOMITING [None]
  - DEHYDRATION [None]
  - DIARRHOEA [None]
